FAERS Safety Report 5583945-9 (Version None)
Quarter: 2008Q1

REPORT INFORMATION
  Report Type: 
  Country: None (occurrence: None)
  Receive Date: 20080103
  Receipt Date: 20080103
  Transmission Date: 20080703
  Serious: No
  Sender: FDA-Public Use
  Company Number: None

PATIENT
  Age: 44 Year
  Sex: Male
  Weight: 85 kg

DRUGS (1)
  1. OLANZAPINE [Suspect]
     Dosage: 20 MG HS

REACTIONS (1)
  - BLOOD CHOLESTEROL INCREASED [None]
